FAERS Safety Report 5850458-6 (Version None)
Quarter: 2008Q3

REPORT INFORMATION
  Report Type: 
  Country: None (occurrence: None)
  Receive Date: 20080819
  Receipt Date: 20080808
  Transmission Date: 20090109
  Serious: Yes (Other)
  Sender: FDA-Public Use
  Company Number: DE-PFIZER INC-2008064961

PATIENT
  Sex: Female

DRUGS (3)
  1. ATARAX [Suspect]
     Dosage: DAILY DOSE:500MG-FREQ:FREQUENCY: ONCE
     Route: 048
     Dates: start: 20080711, end: 20080711
  2. ALCOHOL [Suspect]
     Route: 048
     Dates: start: 20080711, end: 20080711
  3. TRAMADOL HCL [Suspect]
     Dosage: DAILY DOSE:300MG-FREQ:FREQUENCY: ONCE
     Route: 048
     Dates: start: 20080711, end: 20080711

REACTIONS (5)
  - ABDOMINAL PAIN [None]
  - MULTIPLE DRUG OVERDOSE INTENTIONAL [None]
  - NAUSEA [None]
  - OVERDOSE [None]
  - SUICIDE ATTEMPT [None]
